FAERS Safety Report 8181729-9 (Version None)
Quarter: 2012Q1

REPORT INFORMATION
  Report Type: 
  Country: None (occurrence: None)
  Receive Date: 20120302
  Receipt Date: 20111003
  Transmission Date: 20120608
  Serious: Yes (Other)
  Sender: FDA-Public Use
  Company Number: US-AMGEN-USASP2011048732

PATIENT
  Sex: Female
  Weight: 58.503 kg

DRUGS (4)
  1. DEPO-PROVERA [Concomitant]
     Dosage: UNK UNK, Q3MO
  2. NPLATE [Suspect]
     Indication: IDIOPATHIC THROMBOCYTOPENIC PURPURA
     Dosage: 5 MUG/KG, UNK
     Route: 058
     Dates: start: 20110429, end: 20110609
  3. CORTICOSTEROIDS [Concomitant]
     Indication: IDIOPATHIC THROMBOCYTOPENIC PURPURA
  4. ALLEGRA-D 12 HOUR [Concomitant]
     Dosage: UNK UNK, PRN

REACTIONS (1)
  - DRUG INEFFECTIVE [None]
